FAERS Safety Report 8086928-2 (Version None)
Quarter: 2012Q1

REPORT INFORMATION
  Report Type: 
  Country: None (occurrence: None)
  Receive Date: 20120128
  Receipt Date: 20110519
  Transmission Date: 20120608
  Serious: No
  Sender: FDA-Public Use
  Company Number: US-ABBOTT-11P-163-0727363-00

PATIENT
  Age: 34 Year
  Sex: Female

DRUGS (2)
  1. HUMIRA [Suspect]
     Indication: CROHN'S DISEASE
     Dosage: 160 MG, (LOADING DOSE)
     Dates: start: 20110504, end: 20110504
  2. HUMIRA [Suspect]
     Dates: start: 20110517

REACTIONS (2)
  - INJECTION SITE PRURITUS [None]
  - INJECTION SITE ERYTHEMA [None]
